FAERS Safety Report 16452711 (Version 2)
Quarter: 2019Q4

REPORT INFORMATION
  Report Type: Spontaneous
  Country: BR (occurrence: BR)
  Receive Date: 20190619
  Receipt Date: 20191031
  Transmission Date: 20200122
  Serious: Yes (Other)
  Sender: FDA-Public Use
  Company Number: BR-TOPROL ACQUISITION LLC-2019-TOP-000380

PATIENT
  Sex: Female

DRUGS (4)
  1. METOPROLOL SUCCINATE. [Suspect]
     Active Substance: METOPROLOL SUCCINATE
     Indication: MALAISE
  2. METOPROLOL SUCCINATE. [Suspect]
     Active Substance: METOPROLOL SUCCINATE
     Indication: ANXIETY
  3. SERUM [Concomitant]
     Indication: PRODUCT USED FOR UNKNOWN INDICATION
     Dosage: UNK
  4. METOPROLOL SUCCINATE. [Suspect]
     Active Substance: METOPROLOL SUCCINATE
     Indication: FATIGUE
     Dosage: 25 MG, 1/2 TABLET
     Route: 048
     Dates: start: 2019

REACTIONS (19)
  - Abdominal pain [Unknown]
  - Blood pressure increased [Unknown]
  - Sensory loss [Not Recovered/Not Resolved]
  - Off label use [Unknown]
  - Palpitations [Unknown]
  - Hypoaesthesia [Unknown]
  - Nausea [Unknown]
  - Reduced facial expression [Unknown]
  - Eye irritation [Unknown]
  - Headache [Unknown]
  - Paralysis [Unknown]
  - Anxiety [Unknown]
  - Diarrhoea [Unknown]
  - Speech disorder [Unknown]
  - Cerebrovascular accident [Unknown]
  - Tremor [Unknown]
  - Heart rate increased [Not Recovered/Not Resolved]
  - Malaise [Unknown]
  - Product use in unapproved indication [Unknown]
